FAERS Safety Report 5723741-2 (Version None)
Quarter: 2008Q2

REPORT INFORMATION
  Report Type: 
  Country: None (occurrence: None)
  Receive Date: 20080430
  Receipt Date: 20080424
  Transmission Date: 20081010
  Serious: Yes (Death, Life-Threatening, Hospitalization)
  Sender: FDA-Public Use
  Company Number: JP-JNJFOC-20080307064

PATIENT
  Sex: Female
  Weight: 41 kg

DRUGS (10)
  1. PALIPERIDONE [Suspect]
     Route: 048
  2. PALIPERIDONE [Suspect]
     Route: 048
  3. PALIPERIDONE [Suspect]
     Route: 048
  4. PALIPERIDONE [Suspect]
     Route: 048
  5. PALIPERIDONE [Suspect]
     Route: 048
  6. PALIPERIDONE [Suspect]
     Route: 048
  7. PALIPERIDONE [Suspect]
     Indication: SCHIZOPHRENIA
     Route: 048
  8. BISACODYL [Concomitant]
     Indication: CONSTIPATION
  9. SOLANAX [Concomitant]
     Indication: SCHIZOPHRENIA
  10. OLANZAPINE [Concomitant]
     Indication: SCHIZOPHRENIA

REACTIONS (1)
  - PNEUMONIA [None]
